FAERS Safety Report 6747159-9 (Version None)
Quarter: 2010Q2

REPORT INFORMATION
  Report Type: 
  Country: None (occurrence: None)
  Receive Date: 20100528
  Receipt Date: 20100519
  Transmission Date: 20101027
  Serious: Yes (Other)
  Sender: FDA-Public Use
  Company Number: US-PFIZER INC-2010053038

PATIENT
  Age: 51 Year
  Sex: Female

DRUGS (4)
  1. DOXYCYCLINE HYCLATE [Suspect]
     Indication: ACNE
     Dosage: 40 MG, 1X/DAY
     Route: 048
  2. AMPICILLIN SODIUM [Suspect]
     Indication: ACNE
     Dosage: 500 MG, UNK
     Route: 048
  3. PROGESTERONE [Concomitant]
     Dosage: UNK
  4. MULTI-VITAMINS [Concomitant]

REACTIONS (1)
  - ARTHRALGIA [None]
